FAERS Safety Report 12176412 (Version 1)
Quarter: 2016Q1

REPORT INFORMATION
  Report Type: Spontaneous
  Country: US (occurrence: US)
  Receive Date: 20160314
  Receipt Date: 20160314
  Transmission Date: 20160526
  Serious: Yes (Other)
  Sender: FDA-Public Use
  Company Number: US-BAYER-2016-044831

PATIENT
  Age: 22 Year
  Sex: Female
  Weight: 79.82 kg

DRUGS (3)
  1. SKYLA [Suspect]
     Active Substance: LEVONORGESTREL
     Indication: CONTRACEPTION
     Dosage: 14 MCG/24HR, CONT
     Route: 015
     Dates: start: 201411
  2. SKYLA [Suspect]
     Active Substance: LEVONORGESTREL
     Indication: MENORRHAGIA
  3. LOESTRIN NOS [Suspect]
     Active Substance: ETHINYL ESTRADIOL\NORETHINDRONE ACETATE
     Route: 048

REACTIONS (9)
  - Swelling face [None]
  - Weight increased [None]
  - Post procedural haemorrhage [None]
  - Autoimmune thyroiditis [None]
  - Procedural pain [None]
  - Depressed mood [None]
  - Hyperinsulinism [None]
  - Hypothyroidism [None]
  - Crying [None]

NARRATIVE: CASE EVENT DATE: 201411
